FAERS Safety Report 7128590-9 (Version None)
Quarter: 2010Q4

REPORT INFORMATION
  Report Type: 
  Country: None (occurrence: None)
  Receive Date: 20101130
  Receipt Date: 20101122
  Transmission Date: 20110411
  Serious: Yes (Hospitalization)
  Sender: FDA-Public Use
  Company Number: TW-ROXANE LABORATORIES, INC.-2010-RO-01534RO

PATIENT
  Age: 27 Year
  Sex: Male

DRUGS (14)
  1. METHOTREXATE [Suspect]
     Indication: ACUTE LYMPHOCYTIC LEUKAEMIA
     Route: 037
     Dates: start: 20041201, end: 20050301
  2. METHOTREXATE [Suspect]
     Route: 042
     Dates: end: 20080110
  3. CYCLOPHOSPHAMIDE [Suspect]
     Indication: ACUTE LYMPHOCYTIC LEUKAEMIA
     Dates: start: 20041201, end: 20050301
  4. CYCLOPHOSPHAMIDE [Suspect]
     Dates: start: 20050701, end: 20050901
  5. CYCLOPHOSPHAMIDE [Suspect]
     Dates: start: 20050701, end: 20050901
  6. MERCAPTOPURINE [Suspect]
     Indication: ACUTE LYMPHOCYTIC LEUKAEMIA
     Dosage: 50 MG
  7. VINCRISTINE [Suspect]
     Indication: ACUTE LYMPHOCYTIC LEUKAEMIA
     Dates: start: 20041201, end: 20050301
  8. DAUNORUBICIN [Suspect]
     Indication: ACUTE LYMPHOCYTIC LEUKAEMIA
     Dates: start: 20041201, end: 20050301
  9. ELSPAR [Suspect]
     Indication: ACUTE LYMPHOCYTIC LEUKAEMIA
     Dates: start: 20041201, end: 20050301
  10. PREDNISOLONE [Suspect]
     Indication: ACUTE LYMPHOCYTIC LEUKAEMIA
     Dates: start: 20041201, end: 20050301
  11. ARA-C [Suspect]
     Indication: ACUTE LYMPHOCYTIC LEUKAEMIA
     Dates: start: 20041201, end: 20050301
  12. MITOXANTRONE [Suspect]
     Indication: ACUTE LYMPHOCYTIC LEUKAEMIA
     Dates: start: 20041201, end: 20050301
  13. ETOPOSIDE [Suspect]
     Indication: ACUTE LYMPHOCYTIC LEUKAEMIA
     Dates: start: 20050701, end: 20050901
  14. CISPLATIN [Suspect]
     Indication: ACUTE LYMPHOCYTIC LEUKAEMIA
     Dates: start: 20050701, end: 20050901

REACTIONS (4)
  - PNEUMOTHORAX [None]
  - PULMONARY FIBROSIS [None]
  - RESTRICTIVE PULMONARY DISEASE [None]
  - THERAPEUTIC RESPONSE DECREASED [None]
